FAERS Safety Report 25494753 (Version 1)
Quarter: 2025Q2

REPORT INFORMATION
  Report Type: Spontaneous
  Country: AR (occurrence: AR)
  Receive Date: 20250630
  Receipt Date: 20250630
  Transmission Date: 20250717
  Serious: Yes (Death, Other)
  Sender: ABBVIE
  Company Number: AR-ABBVIE-6349768

PATIENT
  Age: 63 Year
  Sex: Female

DRUGS (1)
  1. MIRVETUXIMAB SORAVTANSINE-GYNX [Suspect]
     Active Substance: MIRVETUXIMAB SORAVTANSINE-GYNX
     Indication: Ovarian cancer
     Route: 042
     Dates: start: 202311, end: 202403

REACTIONS (4)
  - Death [Fatal]
  - Ovarian cancer [Unknown]
  - Mucosal inflammation [Unknown]
  - Colitis [Unknown]

NARRATIVE: CASE EVENT DATE: 20240801
